FAERS Safety Report 9180954 (Version 3)
Quarter: 2013Q3

REPORT INFORMATION
  Report Type: Spontaneous
  Country: GB (occurrence: GB)
  Receive Date: 20130322
  Receipt Date: 20130802
  Transmission Date: 20140515
  Serious: Yes (Other)
  Sender: FDA-Public Use
  Company Number: PHFR2013GB001609

PATIENT
  Age: 39 Year
  Sex: Male

DRUGS (6)
  1. CLOZARIL [Suspect]
     Indication: SCHIZOPHRENIA
     Dosage: 500 MG, QD
     Route: 048
     Dates: start: 20100920, end: 20130311
  2. LANSOPRAZOLE [Concomitant]
     Dosage: 30 MG, QD
     Route: 048
  3. TRAMADOL [Concomitant]
     Dosage: 50 MG, TID PRN
     Route: 048
  4. MIRTAZAPINE [Concomitant]
     Dosage: 45 MG, MANE
     Route: 048
  5. ADIZEM [Concomitant]
     Dosage: 300 MG, QD
     Route: 048
  6. ARIPIPRAZOLE [Concomitant]
     Dosage: 10 MG, MANE
     Route: 048

REACTIONS (4)
  - Nonspecific reaction [Unknown]
  - Gamma-glutamyltransferase increased [Unknown]
  - Alanine aminotransferase increased [Unknown]
  - Blood alkaline phosphatase increased [Recovered/Resolved]
